FAERS Safety Report 5322068-0 (Version None)
Quarter: 2007Q2

REPORT INFORMATION
  Report Type: 
  Country: None (occurrence: None)
  Receive Date: 20070511
  Receipt Date: 20070501
  Transmission Date: 20071010
  Serious: Yes (Hospitalization, Other)
  Sender: FDA-Public Use
  Company Number: GB-NOVOPROD-260791

PATIENT
  Sex: Male
  Weight: 41.6 kg

DRUGS (3)
  1. LEVEMIR [Suspect]
     Indication: DIABETES MELLITUS INSULIN-DEPENDENT
     Dosage: 17 IU, QD
     Route: 058
     Dates: start: 20060727
  2. LEVEMIR [Suspect]
     Dosage: 19 IU, QD
     Route: 058
  3. NOVORAPID [Concomitant]
     Indication: DIABETES MELLITUS INSULIN-DEPENDENT
     Dosage: UNK, UNK
     Route: 058
     Dates: start: 20060727

REACTIONS (3)
  - COUGH [None]
  - DEVICE FAILURE [None]
  - DIABETIC KETOACIDOSIS [None]
